FAERS Safety Report 10829334 (Version 1)
Quarter: 2015Q1

REPORT INFORMATION
  Report Type: Report from Study
  Country: US (occurrence: US)
  Receive Date: 20150219
  Receipt Date: 20150219
  Transmission Date: 20150721
  Serious: No
  Sender: FDA-Public Use
  Company Number: US-ABBVIE-14P-163-1191557-00

PATIENT
  Sex: Male
  Weight: 80.81 kg

DRUGS (3)
  1. HUMIRA [Suspect]
     Active Substance: ADALIMUMAB
     Dates: start: 20111205
  2. HUMIRA [Suspect]
     Active Substance: ADALIMUMAB
     Dates: start: 20111121, end: 20111121
  3. HUMIRA [Suspect]
     Active Substance: ADALIMUMAB
     Indication: CROHN^S DISEASE
     Route: 058
     Dates: start: 20111107, end: 20111107

REACTIONS (1)
  - Skin fissures [Not Recovered/Not Resolved]
